FAERS Safety Report 5734787-2 (Version None)
Quarter: 2008Q2

REPORT INFORMATION
  Report Type: 
  Country: None (occurrence: None)
  Receive Date: 20080508
  Receipt Date: 20080508
  Transmission Date: 20081010
  Serious: No
  Sender: FDA-Public Use
  Company Number: None

PATIENT
  Age: 67 Year
  Sex: Male

DRUGS (1)
  1. DIGOXIN [Suspect]
     Indication: CARDIAC DISORDER
     Dosage: ONE ALT WITH ONE + ONE HALF DAILY PO OVER 1 MONTH
     Route: 048

REACTIONS (4)
  - DECREASED APPETITE [None]
  - DYSPNOEA [None]
  - HEART RATE IRREGULAR [None]
  - PHARMACEUTICAL PRODUCT COMPLAINT [None]
